FAERS Safety Report 9754140 (Version 1)
Quarter: 2013Q4

REPORT INFORMATION
  Report Type: Spontaneous
  Country: US (occurrence: US)
  Receive Date: 20131213
  Receipt Date: 20131213
  Transmission Date: 20140711
  Serious: No
  Sender: FDA-Public Use
  Company Number: US-GLAXOSMITHKLINE-A1024664A

PATIENT
  Age: 47 Year
  Sex: Female

DRUGS (3)
  1. WALGREENS LOZENGE ORIGINAL 2 MG [Suspect]
     Indication: EX-TOBACCO USER
  2. NICORETTE OTC, UNSPECIFIED [Suspect]
     Indication: EX-TOBACCO USER
  3. UNSPECIFIED MEDICATION [Concomitant]

REACTIONS (8)
  - Malaise [Recovered/Resolved]
  - Dizziness [Recovered/Resolved]
  - Nausea [Recovered/Resolved]
  - Headache [Recovered/Resolved]
  - Vomiting [Recovered/Resolved]
  - Vertigo [Recovered/Resolved]
  - Euphoric mood [Recovered/Resolved]
  - Dysgeusia [Recovered/Resolved]
